FAERS Safety Report 4425336-X (Version None)
Quarter: 2004Q3

REPORT INFORMATION
  Report Type: 
  Country: None (occurrence: None)
  Receive Date: 20040813
  Receipt Date: 20040803
  Transmission Date: 20050211
  Serious: Yes (Death, Life-Threatening)
  Sender: FDA-Public Use
  Company Number: JP-JNJFOC-20031101790

PATIENT
  Sex: Female

DRUGS (6)
  1. DUROTEP [Suspect]
     Indication: CANCER PAIN
     Route: 062
     Dates: start: 20031004, end: 20031014
  2. NEDAPLATIN [Suspect]
     Indication: DRUG USE FOR UNKNOWN INDICATION
     Route: 065
  3. FLUOROURACIL [Suspect]
     Indication: DRUG USE FOR UNKNOWN INDICATION
     Route: 065
  4. SODIUM PICOSULFATE [Concomitant]
     Indication: CONSTIPATION
     Route: 049
     Dates: start: 20030802, end: 20031012
  5. DIMETICONE [Concomitant]
     Indication: GASTRITIS
     Route: 065
     Dates: start: 20030918, end: 20031013
  6. BENIDIPINE HYDROCHLORIDE [Concomitant]
     Indication: HYPERTENSION
     Route: 065

REACTIONS (8)
  - ASPARTATE AMINOTRANSFERASE INCREASED [None]
  - BLOOD ALBUMIN DECREASED [None]
  - BLOOD SODIUM DECREASED [None]
  - CACHEXIA [None]
  - DISSEMINATED INTRAVASCULAR COAGULATION [None]
  - HYPOKALAEMIA [None]
  - LEUKOPENIA [None]
  - RESPIRATORY FAILURE [None]
